FAERS Safety Report 17967326 (Version 1)
Quarter: 2020Q3

REPORT INFORMATION
  Report Type: Spontaneous
  Country: US (occurrence: US)
  Receive Date: 20200701
  Receipt Date: 20200701
  Transmission Date: 20201103
  Serious: No
  Sender: FDA-Public Use
  Company Number: US-TEVA-2020-US-1793197

PATIENT
  Sex: Female
  Weight: 72.57 kg

DRUGS (6)
  1. ANORO ELLIPTA [Concomitant]
     Active Substance: UMECLIDINIUM BROMIDE\VILANTEROL TRIFENATATE
     Route: 065
  2. BABY ASPIRIN [Concomitant]
     Active Substance: ASPIRIN
     Route: 065
  3. QVAR REDIHALER [Suspect]
     Active Substance: BECLOMETHASONE DIPROPIONATE
     Indication: EMPHYSEMA
     Dosage: 2 PUFFS IN THE MORNING AND 2 PUFFS IN THE EVENING
     Route: 065
     Dates: start: 201904
  4. QVAR REDIHALER [Suspect]
     Active Substance: BECLOMETHASONE DIPROPIONATE
     Indication: ASTHMA
  5. BIOTIN [Concomitant]
     Active Substance: BIOTIN
     Route: 065
  6. VITAMIN D [Concomitant]
     Active Substance: VITAMIN D NOS
     Route: 065

REACTIONS (5)
  - Insomnia [Unknown]
  - Hunger [Unknown]
  - Weight increased [Unknown]
  - Increased appetite [Unknown]
  - Peripheral swelling [Unknown]
